FAERS Safety Report 20723213 (Version 13)
Quarter: 2022Q4

REPORT INFORMATION
  Report Type: Report from Study
  Country: CA (occurrence: CA)
  Receive Date: 20220419
  Receipt Date: 20221128
  Transmission Date: 20230113
  Serious: Yes (Hospitalization, Disabling, Other)
  Sender: FDA-Public Use
  Company Number: CA-BRISTOL-MYERS SQUIBB COMPANY-2022-020333

PATIENT
  Age: 66 Year
  Sex: Male
  Weight: 83.8 kg

DRUGS (5)
  1. OPDIVO [Suspect]
     Active Substance: NIVOLUMAB
     Indication: Gastric cancer
     Route: 042
     Dates: start: 20220318, end: 20220819
  2. CRESTOR [Concomitant]
     Active Substance: ROSUVASTATIN CALCIUM
     Indication: Product used for unknown indication
     Route: 065
  3. NORVASC [Concomitant]
     Active Substance: AMLODIPINE BESYLATE
     Indication: Product used for unknown indication
     Route: 065
  4. ATACAND [Concomitant]
     Active Substance: CANDESARTAN CILEXETIL
     Indication: Product used for unknown indication
     Route: 065
  5. TALTZ [Concomitant]
     Active Substance: IXEKIZUMAB
     Indication: Product used for unknown indication
     Dosage: ON HOLD
     Route: 065

REACTIONS (33)
  - Pyrexia [Unknown]
  - Haematochezia [Recovering/Resolving]
  - Gastrointestinal haemorrhage [Unknown]
  - White blood cell count decreased [Unknown]
  - Joint swelling [Recovered/Resolved]
  - Diarrhoea [Recovered/Resolved]
  - Pain in extremity [Recovered/Resolved]
  - Psoriasis [Not Recovered/Not Resolved]
  - Pruritus [Not Recovered/Not Resolved]
  - Peripheral coldness [Recovering/Resolving]
  - Hypoaesthesia oral [Not Recovered/Not Resolved]
  - Muscle spasms [Recovered/Resolved]
  - Faeces soft [Unknown]
  - Increased appetite [Unknown]
  - Fatigue [Unknown]
  - Night sweats [Unknown]
  - Weight increased [Unknown]
  - Hypoaesthesia [Recovering/Resolving]
  - Thirst [Not Recovered/Not Resolved]
  - Rhinorrhoea [Recovered/Resolved]
  - Abdominal pain [Recovered/Resolved]
  - Dry skin [Recovered/Resolved]
  - Constipation [Unknown]
  - Flatulence [Unknown]
  - Chromaturia [Unknown]
  - Weight decreased [Unknown]
  - Nail discolouration [Recovering/Resolving]
  - Myalgia [Unknown]
  - Chills [Unknown]
  - Urinary incontinence [Not Recovered/Not Resolved]
  - Gait disturbance [Unknown]
  - Base excess decreased [Unknown]
  - Malignant neoplasm progression [Not Recovered/Not Resolved]

NARRATIVE: CASE EVENT DATE: 20220101
